FAERS Safety Report 5382674-4 (Version None)
Quarter: 2007Q3

REPORT INFORMATION
  Report Type: 
  Country: None (occurrence: None)
  Receive Date: 20070703
  Receipt Date: 20070703
  Transmission Date: 20080115
  Serious: Yes (Hospitalization)
  Sender: FDA-Public Use
  Company Number: None

PATIENT
  Sex: Female
  Weight: 66 kg

DRUGS (5)
  1. CARBOPLATIN [Suspect]
     Dosage: 600 MG
  2. TAXOL [Suspect]
     Dosage: 290 MG
  3. ASPIRIN [Concomitant]
  4. COMPAZINE [Concomitant]
  5. DECADRON [Concomitant]

REACTIONS (4)
  - ABDOMINAL PAIN LOWER [None]
  - NAUSEA [None]
  - PYREXIA [None]
  - WHITE BLOOD CELL COUNT DECREASED [None]
